FAERS Safety Report 11472598 (Version 4)
Quarter: 2015Q4

REPORT INFORMATION
  Report Type: Spontaneous
  Country: GB (occurrence: GB)
  Receive Date: 20150908
  Receipt Date: 20151221
  Transmission Date: 20160304
  Serious: Yes (Hospitalization)
  Sender: FDA-Public Use
  Company Number: PHFR2015GB006531

PATIENT
  Age: 45 Year
  Sex: Male

DRUGS (1)
  1. GILENYA [Suspect]
     Active Substance: FINGOLIMOD HYDROCHLORIDE
     Indication: PRODUCT USED FOR UNKNOWN INDICATION
     Dosage: UNK
     Route: 065

REACTIONS (11)
  - Motor dysfunction [Unknown]
  - Gait disturbance [Unknown]
  - Mobility decreased [Unknown]
  - Visual acuity reduced [Unknown]
  - Haemorrhagic stroke [Recovered/Resolved]
  - Fall [Unknown]
  - Balance disorder [Unknown]
  - Coordination abnormal [Unknown]
  - Vision blurred [Unknown]
  - Headache [Unknown]
  - Confusional state [Unknown]

NARRATIVE: CASE EVENT DATE: 201502
